FAERS Safety Report 5806069-1 (Version None)
Quarter: 2008Q3

REPORT INFORMATION
  Report Type: 
  Country: None (occurrence: None)
  Receive Date: 20080709
  Receipt Date: 20080709
  Transmission Date: 20090109
  Serious: No
  Sender: FDA-Public Use
  Company Number: None

PATIENT
  Age: 74 Year
  Sex: Male

DRUGS (2)
  1. WARFARIN SODIUM [Suspect]
     Dates: start: 19951206, end: 20080130
  2. LEVOFLOXACIN [Suspect]
     Dosage: 750 MG EVERY DAY IV
     Route: 042
     Dates: start: 20080504, end: 20080506

REACTIONS (1)
  - INTERNATIONAL NORMALISED RATIO INCREASED [None]
